FAERS Safety Report 8625066-4 (Version None)
Quarter: 2012Q3

REPORT INFORMATION
  Report Type: 
  Country: None (occurrence: None)
  Receive Date: 20120827
  Receipt Date: 20120813
  Transmission Date: 20120928
  Serious: Yes (Hospitalization)
  Sender: FDA-Public Use
  Company Number: GB-NOVEN-12GB005115

PATIENT
  Age: 77 Year
  Sex: Female

DRUGS (1)
  1. FENTANYL [Suspect]
     Indication: BACK PAIN
     Dosage: 50 UG/HR
     Route: 062

REACTIONS (11)
  - DEHYDRATION [None]
  - WOUND NECROSIS [None]
  - RESPIRATORY DEPRESSION [None]
  - RENAL FAILURE ACUTE [None]
  - SUNBURN [None]
  - COMA [None]
  - MIOSIS [None]
  - ACCIDENTAL OVERDOSE [None]
  - DRUG ADMINISTRATION ERROR [None]
  - HYPERTHERMIA [None]
  - ELECTROLYTE IMBALANCE [None]
